FAERS Safety Report 21515041 (Version 1)
Quarter: 2022Q4

REPORT INFORMATION
  Report Type: Spontaneous
  Country: US (occurrence: US)
  Receive Date: 20221027
  Receipt Date: 20221027
  Transmission Date: 20230113
  Serious: No
  Sender: FDA-Public Use
  Company Number: US-UPSHER-SMITH LABORATORIES, LLC-2022USL00105

PATIENT
  Age: 69 Year
  Sex: Male
  Weight: 90.703 kg

DRUGS (11)
  1. JANTOVEN [Suspect]
     Active Substance: WARFARIN SODIUM
     Indication: Aortic valve replacement
     Dosage: UNK, 3X/WEEK
     Route: 048
     Dates: start: 202110, end: 20220209
  2. JANTOVEN [Suspect]
     Active Substance: WARFARIN SODIUM
     Indication: Aortic valve replacement
     Dosage: 4 MG, 1X/DAY
     Route: 048
     Dates: start: 2009, end: 202110
  3. JANTOVEN [Suspect]
     Active Substance: WARFARIN SODIUM
     Dosage: 4 MG, 4X/WEEK
     Route: 048
     Dates: start: 202110
  4. JANTOVEN [Suspect]
     Active Substance: WARFARIN SODIUM
     Dosage: 6 MG (1.5 TABLETS), 3X/WEEK
     Route: 048
     Dates: start: 20220210
  5. LEVOTHYROXINE [Concomitant]
     Active Substance: LEVOTHYROXINE
  6. METOPROLOL [Concomitant]
     Active Substance: METOPROLOL
  7. ASPIRIN [Concomitant]
     Active Substance: ASPIRIN
  8. FINASTERIDE [Concomitant]
     Active Substance: FINASTERIDE
  9. TAMSULOSIN [Concomitant]
     Active Substance: TAMSULOSIN
  10. LISINOPRIL [Concomitant]
     Active Substance: LISINOPRIL
  11. METFORMIN [Concomitant]
     Active Substance: METFORMIN HYDROCHLORIDE

REACTIONS (3)
  - Allergic reaction to excipient [Recovered/Resolved]
  - Pruritus [Recovered/Resolved]
  - Urticaria [Recovered/Resolved]

NARRATIVE: CASE EVENT DATE: 20211101
